FAERS Safety Report 20581442 (Version 1)
Quarter: 2022Q1

REPORT INFORMATION
  Report Type: Spontaneous
  Country: MX (occurrence: MX)
  Receive Date: 20220311
  Receipt Date: 20220311
  Transmission Date: 20220424
  Serious: Yes (Death, Other)
  Sender: FDA-Public Use
  Company Number: MX-SUN PHARMACEUTICAL INDUSTRIES LTD-2022R1-328924

PATIENT
  Age: 42 Year
  Sex: Female

DRUGS (2)
  1. GEMCITABINE [Suspect]
     Active Substance: GEMCITABINE
     Indication: Chemotherapy
     Dosage: 900 MILLIGRAM/SQ. METER/DAYS 1 AND 8/ EVERY 3 WEEK/ 4  CYCLES
     Route: 065
     Dates: start: 202006, end: 202008
  2. DOCETAXEL [Suspect]
     Active Substance: DOCETAXEL
     Indication: Chemotherapy
     Dosage: 75 MILLIGRAM/SQ. METER/ON DAY 1/ EVERY 3 WEEK/ 4 CYCLES
     Route: 065
     Dates: start: 202006, end: 202008

REACTIONS (2)
  - Disease progression [Fatal]
  - Cytopenia [Unknown]

NARRATIVE: CASE EVENT DATE: 20200801
